FAERS Safety Report 4512790-8 (Version None)
Quarter: 2004Q4

REPORT INFORMATION
  Report Type: 
  Country: None (occurrence: None)
  Receive Date: 20041119
  Receipt Date: 20041119
  Transmission Date: 20050328
  Serious: No
  Sender: FDA-Public Use
  Company Number: None

PATIENT
  Age: 47 Year
  Sex: Female

DRUGS (2)
  1. MOBIC [Suspect]
     Indication: PAIN
     Dosage: 7.5MG BID   TIMES 5 DAYS  ORAL
     Route: 048
     Dates: start: 20041001, end: 20041115
  2. MOBIC [Suspect]
     Indication: SARCOIDOSIS
     Dosage: 7.5MG BID   TIMES 5 DAYS  ORAL
     Route: 048
     Dates: start: 20041001, end: 20041115

REACTIONS (8)
  - BLOOD PRESSURE DIASTOLIC INCREASED [None]
  - BLOOD PRESSURE INCREASED [None]
  - CHEST PAIN [None]
  - FATIGUE [None]
  - HEADACHE [None]
  - HEART RATE IRREGULAR [None]
  - HYPERHIDROSIS [None]
  - PALPITATIONS [None]
